FAERS Safety Report 16461634 (Version 4)
Quarter: 2021Q4

REPORT INFORMATION
  Report Type: Other
  Country: US (occurrence: None)
  Receive Date: 20190621
  Receipt Date: 20211116
  Transmission Date: 20220304
  Serious: Yes (Other)
  Sender: FDA-Public Use
  Company Number: US-ROCHE-2335632

PATIENT
  Sex: Female
  Weight: 71.278 kg

DRUGS (15)
  1. OCREVUS [Suspect]
     Active Substance: OCRELIZUMAB
     Indication: Relapsing-remitting multiple sclerosis
     Dosage: ONGOING:YES?DATE: 04/NOV/2021
     Route: 042
     Dates: start: 20181217
  2. OCREVUS [Suspect]
     Active Substance: OCRELIZUMAB
     Dosage: ONGOING: YES, THERAPY START DATE: 14/JAN/2020?DOT:14/JAN/2019, 28/JUL/2019, 10/FEB/2020, 10/AUG/2020
     Route: 042
     Dates: start: 20181231
  3. GABAPENTIN [Concomitant]
     Active Substance: GABAPENTIN
     Indication: Pain
     Dosage: TITRATION FROM 1 TO 3 TIMES PER DAY ;ONGOING: YES
     Route: 048
     Dates: start: 20181201
  4. VALTREX [Concomitant]
     Active Substance: VALACYCLOVIR HYDROCHLORIDE
     Indication: Herpes zoster
     Dosage: FOR 6 MONTHS ;ONGOING: YES
     Route: 048
     Dates: start: 20181201
  5. BACTRIM DS [Concomitant]
     Active Substance: SULFAMETHOXAZOLE\TRIMETHOPRIM
     Route: 048
  6. DIFLUCAN [Concomitant]
     Active Substance: FLUCONAZOLE
     Route: 048
  7. ACETAMINOPHEN\HYDROCODONE [Concomitant]
     Active Substance: ACETAMINOPHEN\HYDROCODONE
  8. MYRBETRIQ [Concomitant]
     Active Substance: MIRABEGRON
  9. OMEPRAZOLE [Concomitant]
     Active Substance: OMEPRAZOLE
     Route: 042
  10. PREDNISONE [Concomitant]
     Active Substance: PREDNISONE
  11. TIZANIDINE [Concomitant]
     Active Substance: TIZANIDINE
  12. VALACYCLOVIR [Concomitant]
     Active Substance: VALACYCLOVIR HYDROCHLORIDE
  13. VESICARE [Concomitant]
     Active Substance: SOLIFENACIN SUCCINATE
  14. XANAX [Concomitant]
     Active Substance: ALPRAZOLAM
  15. REBIF [Concomitant]
     Active Substance: INTERFERON BETA-1A

REACTIONS (4)
  - Herpes zoster [Unknown]
  - Multiple sclerosis [Unknown]
  - Malaise [Unknown]
  - Multiple sclerosis relapse [Unknown]
